FAERS Safety Report 10354340 (Version 1)
Quarter: 2014Q3

REPORT INFORMATION
  Report Type: Spontaneous
  Country: GB (occurrence: None)
  Receive Date: 20140729
  Receipt Date: 20140729
  Transmission Date: 20150326
  Serious: Yes (Other)
  Sender: FDA-Public Use
  Company Number: AUR-APL-2014-07956

PATIENT
  Age: 64 Year
  Sex: Female

DRUGS (1)
  1. AMLODIPINE [Suspect]
     Active Substance: AMLODIPINE BESYLATE
     Indication: HYPERTENSION
     Route: 048
     Dates: start: 20140414

REACTIONS (6)
  - Local swelling [None]
  - Rash pruritic [None]
  - Flushing [None]
  - Vision blurred [None]
  - Fatigue [None]
  - Swelling face [None]

NARRATIVE: CASE EVENT DATE: 20140427
